FAERS Safety Report 17057461 (Version 1)
Quarter: 2019Q4

REPORT INFORMATION
  Report Type: Spontaneous
  Country: US (occurrence: US)
  Receive Date: 20191121
  Receipt Date: 20191121
  Transmission Date: 20200122
  Serious: No
  Sender: FDA-Public Use
  Company Number: US-ASTRAZENECA-2019SF52326

PATIENT
  Sex: Female

DRUGS (1)
  1. BYDUREON [Suspect]
     Active Substance: EXENATIDE
     Indication: TYPE 2 DIABETES MELLITUS
     Route: 058
     Dates: start: 20160815

REACTIONS (6)
  - Intentional device misuse [Unknown]
  - Device issue [Unknown]
  - Injection site haemorrhage [Unknown]
  - Product dose omission [Not Recovered/Not Resolved]
  - Osteoarthritis [Unknown]
  - Blood glucose increased [Not Recovered/Not Resolved]
